FAERS Safety Report 22241552 (Version 6)
Quarter: 2024Q1

REPORT INFORMATION
  Report Type: Report from Study
  Country: FR (occurrence: FR)
  Receive Date: 20230421
  Receipt Date: 20240311
  Transmission Date: 20240410
  Serious: Yes (Hospitalization, Other)
  Sender: FDA-Public Use
  Company Number: FR-002147023-NVSC2023FR062451

PATIENT
  Age: 65 Year
  Sex: Male
  Weight: 63 kg

DRUGS (3)
  1. PLUVICTO [Suspect]
     Active Substance: LUTETIUM LU-177 VIPIVOTIDE TETRAXETAN
     Indication: Hormone-refractory prostate cancer
     Dosage: 6987 MBQ, ONCE (CYCLE 1)
     Route: 042
     Dates: start: 20230117, end: 20230117
  2. PLUVICTO [Suspect]
     Active Substance: LUTETIUM LU-177 VIPIVOTIDE TETRAXETAN
     Dosage: 7367 MBQ, ONCE (CYCLE 2)
     Route: 042
     Dates: start: 20230228, end: 20230228
  3. DENOSUMAB [Concomitant]
     Active Substance: DENOSUMAB
     Indication: Product used for unknown indication
     Dosage: UNK
     Route: 065

REACTIONS (13)
  - Pulmonary embolism [Recovered/Resolved]
  - Pyrexia [Unknown]
  - Syncope [Unknown]
  - Dizziness [Unknown]
  - Asthenia [Not Recovered/Not Resolved]
  - Hormone-refractory prostate cancer [Unknown]
  - Malignant neoplasm progression [Unknown]
  - Anaemia [Not Recovered/Not Resolved]
  - Haematotoxicity [Unknown]
  - Haemoglobin decreased [Unknown]
  - General physical health deterioration [Unknown]
  - Hypoalbuminaemia [Recovering/Resolving]
  - Urinary tract infection [Not Recovered/Not Resolved]

NARRATIVE: CASE EVENT DATE: 20230201
